FAERS Safety Report 9219315 (Version 1)
Quarter: 2013Q2

REPORT INFORMATION
  Report Type: Spontaneous
  Country: US (occurrence: US)
  Receive Date: 20130409
  Receipt Date: 20130409
  Transmission Date: 20140414
  Serious: Yes (Hospitalization)
  Sender: FDA-Public Use
  Company Number: US-SANOFI-AVENTIS-2013SA035508

PATIENT
  Age: 70 Year
  Sex: Male

DRUGS (7)
  1. LASIX [Suspect]
     Indication: PRODUCT USED FOR UNKNOWN INDICATION
     Route: 065
  2. LANTUS [Suspect]
     Indication: TYPE 2 DIABETES MELLITUS
     Dosage: DOSE:100 UNIT(S)
     Route: 051
  3. BLINDED THERAPY [Suspect]
     Indication: TYPE 2 DIABETES MELLITUS
     Dates: start: 20110810
  4. TRIMETAZIDINE HYDROCHLORIDE [Concomitant]
  5. RANOLAZINE HYDROCHLORIDE [Concomitant]
  6. IVABRADINE HYDROCHLORIDE [Concomitant]
  7. EZETIMIBE [Concomitant]

REACTIONS (2)
  - Non-cardiac chest pain [Recovered/Resolved]
  - Renal failure acute [Recovered/Resolved]
